FAERS Safety Report 25583357 (Version 9)
Quarter: 2025Q4

REPORT INFORMATION
  Report Type: Report from Study
  Country: GB (occurrence: GB)
  Receive Date: 20250721
  Receipt Date: 20251023
  Transmission Date: 20260118
  Serious: Yes (Life-Threatening, Other)
  Sender: NOVARTIS
  Company Number: GB-002147023-NVSC2025GB095644

PATIENT
  Age: 50 Year
  Sex: Female

DRUGS (9)
  1. MAYZENT [Suspect]
     Active Substance: SIPONIMOD
     Indication: Secondary progressive multiple sclerosis
     Dosage: 0.25 MG, QD
     Route: 048
     Dates: start: 20250612
  2. MAYZENT [Suspect]
     Active Substance: SIPONIMOD
     Dosage: UNK
     Route: 048
     Dates: start: 20250613
  3. MAYZENT [Suspect]
     Active Substance: SIPONIMOD
     Dosage: 2 MG, QD
     Route: 048
  4. MAYZENT [Suspect]
     Active Substance: SIPONIMOD
     Dosage: 1.25 MG, QD
     Route: 048
  5. MAYZENT [Suspect]
     Active Substance: SIPONIMOD
     Dosage: UNK (DAY 5 DOSE)
     Route: 048
     Dates: start: 20250616
  6. MAYZENT [Suspect]
     Active Substance: SIPONIMOD
     Dosage: 0.25 MG, QD, RE-TITRATION
     Route: 048
     Dates: start: 20250915
  7. MAYZENT [Suspect]
     Active Substance: SIPONIMOD
     Dosage: 0.5 MG, QD
     Route: 048
  8. MAYZENT [Suspect]
     Active Substance: SIPONIMOD
     Dosage: RE-TITRATION ( 0.25MG, 0.25MG, 0.5MG, 0.75MG,1.25MG)
     Route: 048
  9. MAYZENT [Suspect]
     Active Substance: SIPONIMOD
     Dosage: 2 MG, QD
     Route: 048
     Dates: start: 20250920, end: 20250923

REACTIONS (20)
  - Lymphopenia [Not Recovered/Not Resolved]
  - Liver injury [Unknown]
  - Nausea [Recovered/Resolved]
  - Lethargy [Not Recovered/Not Resolved]
  - Abdominal distension [Recovering/Resolving]
  - Abdominal pain upper [Recovering/Resolving]
  - Fall [Recovering/Resolving]
  - Abdominal tenderness [Unknown]
  - Contusion [Unknown]
  - Hypoaesthesia [Unknown]
  - Soft tissue injury [Unknown]
  - Ligament sprain [Unknown]
  - Weight bearing difficulty [Unknown]
  - Dizziness [Not Recovered/Not Resolved]
  - Nausea [Recovered/Resolved]
  - Fatigue [Not Recovered/Not Resolved]
  - Nausea [Recovering/Resolving]
  - Malaise [Not Recovered/Not Resolved]
  - Weight increased [Recovering/Resolving]
  - Condition aggravated [Recovering/Resolving]

NARRATIVE: CASE EVENT DATE: 20250601
